FAERS Safety Report 16354146 (Version 1)
Quarter: 2019Q2

REPORT INFORMATION
  Report Type: Spontaneous
  Country: GB (occurrence: GB)
  Receive Date: 20190524
  Receipt Date: 20190524
  Transmission Date: 20190711
  Serious: Yes (Other)
  Sender: FDA-Public Use
  Company Number: GB-TEVA-2019-GB-1053023

PATIENT
  Age: 84 Year
  Sex: Female

DRUGS (10)
  1. MOVICOL [Concomitant]
     Active Substance: POLYETHYLENE GLYCOL 3350\POTASSIUM CHLORIDE\SODIUM BICARBONATE\SODIUM CHLORIDE
  2. ACETYLSALICYLIC ACID [Concomitant]
     Active Substance: ASPIRIN
  3. BUPRENORPHINE HYDROCHLORIDE. [Concomitant]
     Active Substance: BUPRENORPHINE HYDROCHLORIDE
  4. ADCAL-D3 [Concomitant]
     Active Substance: CALCIUM CARBONATE\CHOLECALCIFEROL
  5. NITROFURANTOIN. [Suspect]
     Active Substance: NITROFURANTOIN
     Indication: PROPHYLAXIS URINARY TRACT INFECTION
     Dosage: AT NIGHT
     Route: 065
  6. PIVMECILLINAM [Concomitant]
     Active Substance: AMDINOCILLIN PIVOXIL
  7. GAVISCON [Concomitant]
     Active Substance: ALUMINUM HYDROXIDE\MAGNESIUM CARBONATE
  8. NITROFURANTOIN. [Concomitant]
     Active Substance: NITROFURANTOIN
  9. ALENDRONIC ACID [Concomitant]
     Active Substance: ALENDRONIC ACID
  10. PANTOPRAZOLE [Concomitant]
     Active Substance: PANTOPRAZOLE

REACTIONS (1)
  - Autoimmune hepatitis [Not Recovered/Not Resolved]

NARRATIVE: CASE EVENT DATE: 20190417
